FAERS Safety Report 16310608 (Version 1)
Quarter: 2019Q2

REPORT INFORMATION
  Report Type: Spontaneous
  Country: US (occurrence: US)
  Receive Date: 20190513
  Receipt Date: 20190513
  Transmission Date: 20190711
  Serious: No
  Sender: FDA-Public Use
  Company Number: None

PATIENT
  Age: 39 Year
  Sex: Female
  Weight: 88.2 kg

DRUGS (1)
  1. PANTOPRAZOLE 40 MG TABLET, DELAYED RELEASE [Suspect]
     Active Substance: PANTOPRAZOLE
     Indication: GASTROOESOPHAGEAL REFLUX DISEASE
     Dosage: ?          QUANTITY:1 TABLET(S);?
     Route: 048
     Dates: start: 20190509, end: 20190511

REACTIONS (2)
  - Blood pressure increased [None]
  - Palpitations [None]

NARRATIVE: CASE EVENT DATE: 20190511
